FAERS Safety Report 15535405 (Version 1)
Quarter: 2018Q4

REPORT INFORMATION
  Report Type: Spontaneous
  Country: US (occurrence: US)
  Receive Date: 20181015
  Receipt Date: 20181015
  Transmission Date: 20190205
  Serious: No
  Sender: FDA-Public Use
  Company Number: None

PATIENT
  Age: 41 Year
  Sex: Female
  Weight: 141.52 kg

DRUGS (2)
  1. OTREXUP [Suspect]
     Active Substance: METHOTREXATE
     Indication: RHEUMATOID ARTHRITIS
     Route: 058
  2. ORENCIA [Concomitant]
     Active Substance: ABATACEPT
     Dates: start: 201704

REACTIONS (4)
  - Gastrointestinal disorder [None]
  - Drug ineffective [None]
  - Back disorder [None]
  - Product dose omission [None]
